FAERS Safety Report 19222637 (Version 1)
Quarter: 2021Q2

REPORT INFORMATION
  Report Type: Spontaneous
  Country: US (occurrence: US)
  Receive Date: 20210506
  Receipt Date: 20210506
  Transmission Date: 20210717
  Serious: No
  Sender: FDA-Public Use
  Company Number: US-ASTRAZENECA-2021A304356

PATIENT
  Age: 19038 Day
  Sex: Female
  Weight: 47.6 kg

DRUGS (3)
  1. BYDUREON BCISE [Suspect]
     Active Substance: EXENATIDE
     Indication: DIABETES MELLITUS
     Route: 058
     Dates: start: 20210406
  2. BYDUREON BCISE [Suspect]
     Active Substance: EXENATIDE
     Indication: INSULIN RESISTANCE
     Route: 058
     Dates: start: 20210406
  3. BYDUREON [Concomitant]
     Active Substance: EXENATIDE
     Indication: INSULIN RESISTANCE
     Route: 058
     Dates: start: 2020

REACTIONS (2)
  - Injection site extravasation [Unknown]
  - Incorrect dose administered by device [Not Recovered/Not Resolved]

NARRATIVE: CASE EVENT DATE: 20210406
